FAERS Safety Report 8409560-7 (Version None)
Quarter: 2012Q2

REPORT INFORMATION
  Report Type: 
  Country: None (occurrence: None)
  Receive Date: 20120529
  Receipt Date: 20060928
  Transmission Date: 20120825
  Serious: Yes (Hospitalization, Other)
  Sender: FDA-Public Use
  Company Number: 15691-USA-06-1649

PATIENT
  Age: 35 Year
  Sex: Male

DRUGS (15)
  1. FOLIC ACID [Concomitant]
  2. TOLVAPTAN (TOLVAPTAN) TABLET, 1 DF DOSAGE FORM [Suspect]
     Indication: HYPONATRAEMIA
     Dosage: 60 MG, QD, ORAL
     Route: 048
     Dates: start: 20061003
  3. TOLVAPTAN (TOLVAPTAN) TABLET, 1 DF DOSAGE FORM [Suspect]
     Indication: HYPONATRAEMIA
     Dosage: 60 MG, QD, ORAL
     Route: 048
     Dates: start: 20050407, end: 20060928
  4. DEMADEX [Concomitant]
  5. ATIVAN [Concomitant]
  6. PROTONIX [Concomitant]
  7. LANOXIN [Concomitant]
  8. REGULAR INSULIN [Concomitant]
  9. LOPID [Concomitant]
  10. COUMADIN [Concomitant]
  11. ZOLOFT	/USA/ (SERTRALINE HYDROCHLORIDE) [Concomitant]
  12. PHENERGAN ^AVENTIS PHARMA^ (PROMETHAZINE HYDROCHLORIDE) [Concomitant]
  13. COREG [Concomitant]
  14. CAPTOPRIL [Concomitant]
  15. DIOVAN [Concomitant]

REACTIONS (7)
  - ACUTE PRERENAL FAILURE [None]
  - BLOOD POTASSIUM DECREASED [None]
  - OXYGEN SATURATION DECREASED [None]
  - WEIGHT INCREASED [None]
  - CARDIAC FAILURE [None]
  - HAEMATOCRIT DECREASED [None]
  - HAEMOGLOBIN DECREASED [None]
